FAERS Safety Report 18407741 (Version 2)
Quarter: 2020Q4

REPORT INFORMATION
  Report Type: Spontaneous
  Country: US (occurrence: US)
  Receive Date: 20201021
  Receipt Date: 20201126
  Transmission Date: 20210114
  Serious: Yes (Death)
  Sender: FDA-Public Use
  Company Number: US-MTPC-MTDA2020-0067113

PATIENT
  Sex: Female

DRUGS (4)
  1. RILUZOLE. [Concomitant]
     Active Substance: RILUZOLE
     Indication: PRODUCT USED FOR UNKNOWN INDICATION
     Dosage: 50 MILLIGRAM, BID
     Route: 065
     Dates: start: 20180731
  2. GABAPENTIN. [Concomitant]
     Active Substance: GABAPENTIN
     Indication: PRODUCT USED FOR UNKNOWN INDICATION
     Dosage: 600 MILLIGRAM 1 TAB, QD PRN
     Route: 065
     Dates: start: 20181205
  3. RADICAVA [Suspect]
     Active Substance: EDARAVONE
     Indication: AMYOTROPHIC LATERAL SCLEROSIS
     Dosage: 60 MILLIGRAM / 200 ML X 14 DAYS THEN OFF 14 DAYS
     Route: 042
  4. RADICAVA [Suspect]
     Active Substance: EDARAVONE
     Dosage: 60 MILLIGRAM / 200 ML 10 DAY EVERY 2 WKS
     Route: 042

REACTIONS (1)
  - Death [Fatal]
